FAERS Safety Report 8002714-3 (Version None)
Quarter: 2011Q4

REPORT INFORMATION
  Report Type: 
  Country: None (occurrence: None)
  Receive Date: 20111220
  Receipt Date: 20111213
  Transmission Date: 20120403
  Serious: Yes (Life-Threatening)
  Sender: FDA-Public Use
  Company Number: MSTR-NO-1112S-0266

PATIENT
  Sex: Male
  Weight: 71 kg

DRUGS (1)
  1. METASTRON [Suspect]
     Indication: METASTATIC PAIN
     Dosage: 141 MBQ, SINGLE DOSE, INTRAVENOUS
     Route: 042
     Dates: start: 20111110, end: 20111110

REACTIONS (1)
  - DISSEMINATED INTRAVASCULAR COAGULATION [None]
